FAERS Safety Report 16897780 (Version 3)
Quarter: 2019Q4

REPORT INFORMATION
  Report Type: Spontaneous
  Country: DE (occurrence: DE)
  Receive Date: 20191009
  Receipt Date: 20191021
  Transmission Date: 20200122
  Serious: Yes (Other)
  Sender: FDA-Public Use
  Company Number: DE-SA-2019SA274009

PATIENT
  Sex: Female

DRUGS (1)
  1. CABLIVI [Suspect]
     Active Substance: CAPLACIZUMAB-YHDP
     Route: 065

REACTIONS (3)
  - Schistocytosis [Unknown]
  - Cerebral haemorrhage [Unknown]
  - Anxiety disorder [Unknown]
